FAERS Safety Report 4454265-0 (Version None)
Quarter: 2004Q3

REPORT INFORMATION
  Report Type: 
  Country: None (occurrence: None)
  Receive Date: 20040826
  Receipt Date: 20040616
  Transmission Date: 20050211
  Serious: No
  Sender: FDA-Public Use
  Company Number: WAES 0406USA01819

PATIENT
  Age: 60 Year
  Sex: Female

DRUGS (3)
  1. ZETIA [Suspect]
     Dosage: SEE IMAGE
     Route: 048
     Dates: start: 20030201, end: 20030601
  2. ZETIA [Suspect]
     Dosage: SEE IMAGE
     Route: 048
     Dates: start: 20030601, end: 20040601
  3. ZETIA [Suspect]
     Dosage: SEE IMAGE
     Route: 048
     Dates: start: 20040601

REACTIONS (2)
  - LOW DENSITY LIPOPROTEIN INCREASED [None]
  - MEDICATION ERROR [None]
